FAERS Safety Report 7686650-8 (Version None)
Quarter: 2011Q3

REPORT INFORMATION
  Report Type: 
  Country: None (occurrence: None)
  Receive Date: 20110816
  Receipt Date: 20110816
  Transmission Date: 20111222
  Serious: Yes (Hospitalization, Other)
  Sender: FDA-Public Use
  Company Number: None

PATIENT
  Age: 80 Year
  Sex: Female
  Weight: 59.874 kg

DRUGS (1)
  1. CORDARONE [Suspect]
     Indication: ATRIAL FIBRILLATION
     Dosage: 400MG
     Dates: start: 20110701, end: 20110719

REACTIONS (8)
  - VOMITING [None]
  - MALAISE [None]
  - WEIGHT DECREASED [None]
  - TREMOR [None]
  - NAUSEA [None]
  - COORDINATION ABNORMAL [None]
  - CONSTIPATION [None]
  - VISION BLURRED [None]
